FAERS Safety Report 23424616 (Version 4)
Quarter: 2024Q3

REPORT INFORMATION
  Report Type: Spontaneous
  Country: US (occurrence: US)
  Receive Date: 20240120
  Receipt Date: 20240711
  Transmission Date: 20241017
  Serious: No
  Sender: GLAXOSMITHKLINE
  Company Number: US-GSK-US2024004467

PATIENT
  Sex: Female

DRUGS (1)
  1. BENLYSTA [Suspect]
     Active Substance: BELIMUMAB
     Indication: Systemic lupus erythematosus
     Dosage: 200 MG, WE
     Route: 058
     Dates: start: 2024

REACTIONS (9)
  - Erythema [Unknown]
  - Dry skin [Recovering/Resolving]
  - Coronavirus infection [Unknown]
  - Injection site reaction [Recovered/Resolved with Sequelae]
  - Injection site erythema [Not Recovered/Not Resolved]
  - Injection site discolouration [Recovering/Resolving]
  - Skin exfoliation [Unknown]
  - Wrong technique in device usage process [Unknown]
  - Product dose omission issue [Unknown]
